FAERS Safety Report 5044956-5 (Version None)
Quarter: 2006Q2

REPORT INFORMATION
  Report Type: 
  Country: None (occurrence: None)
  Receive Date: 20060601
  Receipt Date: 20060420
  Transmission Date: 20061013
  Serious: No
  Sender: FDA-Public Use
  Company Number: 2006-BP-04569BP(0)

PATIENT
  Age: 66 Year
  Sex: Female

DRUGS (4)
  1. SPIRIVA [Suspect]
     Indication: CHRONIC OBSTRUCTIVE PULMONARY DISEASE
     Dosage: 18 MCG (18 MCG), IH
     Route: 055
     Dates: end: 20051201
  2. ADVAIR (SERETIDE      /01420901/) [Concomitant]
  3. ALBUTEROL SPIROS [Concomitant]
  4. SINGULAIR [Concomitant]

REACTIONS (4)
  - HYPERSENSITIVITY [None]
  - PALLOR [None]
  - PRURITUS [None]
  - URTICARIA [None]
